FAERS Safety Report 20731190 (Version 1)
Quarter: 2022Q2

REPORT INFORMATION
  Report Type: Spontaneous
  Country: US (occurrence: US)
  Receive Date: 20220420
  Receipt Date: 20220420
  Transmission Date: 20220721
  Serious: No
  Sender: FDA-Public Use
  Company Number: US-BoehringerIngelheim-2022-BI-165588

PATIENT
  Age: 49 Year
  Sex: Female

DRUGS (4)
  1. OFEV [Suspect]
     Active Substance: NINTEDANIB
     Indication: Systemic sclerosis pulmonary
     Route: 048
     Dates: start: 20210511
  2. OFEV [Suspect]
     Active Substance: NINTEDANIB
     Indication: Pulmonary fibrosis
  3. MACITENTAN [Suspect]
     Active Substance: MACITENTAN
     Indication: Pulmonary arterial hypertension
     Route: 048
     Dates: start: 20210616
  4. MACITENTAN [Suspect]
     Active Substance: MACITENTAN
     Route: 048
     Dates: start: 202105

REACTIONS (13)
  - Head discomfort [Recovered/Resolved]
  - Tinnitus [Recovered/Resolved]
  - Sinus disorder [Unknown]
  - Nausea [Recovered/Resolved]
  - Vomiting [Recovered/Resolved]
  - Diarrhoea [Recovering/Resolving]
  - Urinary tract infection [Not Recovered/Not Resolved]
  - Feeling abnormal [Recovered/Resolved]
  - Ear discomfort [Recovered/Resolved]
  - Back pain [Unknown]
  - Product dose omission issue [Unknown]
  - Decreased appetite [Unknown]
  - Increased appetite [Recovered/Resolved]

NARRATIVE: CASE EVENT DATE: 20210101
